FAERS Safety Report 9657318 (Version 2)
Quarter: 2013Q4

REPORT INFORMATION
  Report Type: Spontaneous
  Country: US (occurrence: US)
  Receive Date: 20131030
  Receipt Date: 20131115
  Transmission Date: 20140711
  Serious: Yes (Hospitalization)
  Sender: FDA-Public Use
  Company Number: US-GLAXOSMITHKLINE-A1047142A

PATIENT
  Age: 84 Year
  Sex: Female

DRUGS (4)
  1. ADVAIR [Suspect]
     Indication: PULMONARY FUNCTION TEST
     Dosage: 1PUFF TWICE PER DAY
     Route: 055
     Dates: start: 2008
  2. SPIRIVA [Concomitant]
  3. PREDNISONE [Concomitant]
  4. FUROSEMIDE [Concomitant]

REACTIONS (3)
  - Oxygen saturation increased [Recovered/Resolved]
  - Lung disorder [Not Recovered/Not Resolved]
  - Muscular weakness [Not Recovered/Not Resolved]
